FAERS Safety Report 10207126 (Version 1)
Quarter: 2014Q2

REPORT INFORMATION
  Report Type: Spontaneous
  Country: US (occurrence: US)
  Receive Date: 20140530
  Receipt Date: 20140530
  Transmission Date: 20141212
  Serious: No
  Sender: FDA-Public Use
  Company Number: US-GLAXOSMITHKLINE-A1018412A

PATIENT
  Age: 66 Year
  Sex: Female

DRUGS (5)
  1. VENTOLIN [Suspect]
     Indication: ASTHMA
     Route: 055
  2. LIPITOR [Concomitant]
  3. XANAX [Concomitant]
  4. CELEXA [Concomitant]
  5. SINGULAIR [Concomitant]

REACTIONS (3)
  - Bronchospasm [Recovered/Resolved]
  - Throat irritation [Recovered/Resolved]
  - Oropharyngeal pain [Recovered/Resolved]
